FAERS Safety Report 8543091-9 (Version None)
Quarter: 2012Q3

REPORT INFORMATION
  Report Type: 
  Country: None (occurrence: None)
  Receive Date: 20120727
  Receipt Date: 20110819
  Transmission Date: 20120928
  Serious: No
  Sender: FDA-Public Use
  Company Number: US-MYLANLABS-2011S1017594

PATIENT

DRUGS (1)
  1. LEVOTHYROXINE SODIUM [Suspect]
     Route: 048

REACTIONS (2)
  - ERYTHEMA [None]
  - PRURITUS [None]
